FAERS Safety Report 13653139 (Version 1)
Quarter: 2017Q2

REPORT INFORMATION
  Report Type: Spontaneous
  Country: US (occurrence: US)
  Receive Date: 20170614
  Receipt Date: 20170614
  Transmission Date: 20170830
  Serious: No
  Sender: FDA-Public Use
  Company Number: US-ROCHE-1304712

PATIENT
  Sex: Female

DRUGS (3)
  1. XELODA [Suspect]
     Active Substance: CAPECITABINE
     Indication: BREAST CANCER
     Dosage: 3 TABLETS BY MOUTH IN THE MORNING, 4 TABLETS IN THE EVENING FOR 14 DAYS ON, FOLLOWED BY 7 DAYS OFF
     Route: 065
     Dates: start: 20131025
  2. XELODA [Suspect]
     Active Substance: CAPECITABINE
     Dosage: IN THE EVENING 14 DAYS ON 7 DAYS OFF REPEAT CYCLE
     Route: 048
  3. XELODA [Suspect]
     Active Substance: CAPECITABINE
     Dosage: IN THE MORNING 14 DAYS ON 7 DAYS OFF REPEAT
     Route: 048

REACTIONS (5)
  - Burning sensation [Unknown]
  - Palmar-plantar erythrodysaesthesia syndrome [Unknown]
  - Rash [Unknown]
  - Fatigue [Unknown]
  - Skin exfoliation [Unknown]
